FAERS Safety Report 16178279 (Version 1)
Quarter: 2019Q2

REPORT INFORMATION
  Report Type: Spontaneous
  Country: US (occurrence: US)
  Receive Date: 20190410
  Receipt Date: 20190410
  Transmission Date: 20190711
  Serious: Yes (Life-Threatening, Other)
  Sender: FDA-Public Use
  Company Number: US-AUROBINDO-AUR-APL-2019-016547

PATIENT

DRUGS (14)
  1. DELAMANID [Suspect]
     Active Substance: DELAMANID
     Dosage: UNK
     Route: 065
  2. DELAMANID [Suspect]
     Active Substance: DELAMANID
     Indication: TUBERCULOSIS
     Dosage: 200 MILLIGRAM, DAILY
     Route: 048
     Dates: start: 20180213, end: 201902
  3. LEVOFLOXACIN. [Suspect]
     Active Substance: LEVOFLOXACIN
     Dosage: UNK
     Route: 065
  4. ETHIONAMIDE [Suspect]
     Active Substance: ETHIONAMIDE
     Dosage: UNK
     Route: 065
  5. CYCLOSERINE. [Suspect]
     Active Substance: CYCLOSERINE
     Indication: TUBERCULOSIS
     Dosage: 500 MILLIGRAM, DAILY
     Route: 048
     Dates: start: 20180213, end: 201902
  6. DELAMANID [Suspect]
     Active Substance: DELAMANID
     Dosage: 50 MILLIGRAM, TWO TIMES A DAY
     Route: 065
     Dates: start: 20190220
  7. CYCLOSERINE. [Suspect]
     Active Substance: CYCLOSERINE
     Dosage: 250 MILLIGRAM
     Route: 065
     Dates: start: 20190220
  8. LEVOFLOXACIN. [Suspect]
     Active Substance: LEVOFLOXACIN
     Indication: TUBERCULOSIS
     Dosage: 750 MILLIGRAM, DAILY
     Route: 048
     Dates: start: 20180213, end: 201902
  9. LINEZOLID. [Suspect]
     Active Substance: LINEZOLID
     Indication: TUBERCULOSIS
     Dosage: 600 MILLIGRAM, DAILY
     Route: 048
     Dates: start: 20180213, end: 20180825
  10. LINEZOLID. [Suspect]
     Active Substance: LINEZOLID
     Dosage: UNK
     Route: 065
  11. ETHIONAMIDE [Suspect]
     Active Substance: ETHIONAMIDE
     Indication: TUBERCULOSIS
     Dosage: 500 MILLIGRAM, DAILY
     Route: 048
     Dates: start: 20190213, end: 201902
  12. CYCLOSERINE. [Suspect]
     Active Substance: CYCLOSERINE
     Dosage: UNK
     Route: 065
  13. VITAMIN D3 [Concomitant]
     Active Substance: CHOLECALCIFEROL
     Indication: VITAMIN D DEFICIENCY
     Dosage: UNK
     Route: 065
     Dates: start: 20180116
  14. LEVOFLOXACIN. [Suspect]
     Active Substance: LEVOFLOXACIN
     Dosage: 250 MILLIGRAM
     Route: 065
     Dates: end: 20190220

REACTIONS (5)
  - Weight decreased [Unknown]
  - Decreased appetite [Unknown]
  - Vomiting [Unknown]
  - Nausea [Unknown]
  - Pancytopenia [Recovering/Resolving]

NARRATIVE: CASE EVENT DATE: 20180227
